FAERS Safety Report 21619542 (Version 1)
Quarter: 2022Q4

REPORT INFORMATION
  Report Type: Spontaneous
  Country: US (occurrence: US)
  Receive Date: 20221121
  Receipt Date: 20221121
  Transmission Date: 20230113
  Serious: Yes (Other)
  Sender: FDA-Public Use
  Company Number: US-SPECGX-T202202014

PATIENT
  Sex: Male
  Weight: 79 kg

DRUGS (1)
  1. DEXTROAMPHET SACCHARAT, AMPHET ASPARTATE, DEXTROAMPHET SULFATE AND AMP [Suspect]
     Active Substance: AMPHETAMINE ASPARTATE\AMPHETAMINE SULFATE\DEXTROAMPHETAMINE SACCHARATE\DEXTROAMPHETAMINE SULFATE
     Indication: Narcolepsy
     Dosage: 20 MILLIGRAM, ONE AND A HALF IN THE MORNING AND ONE AND A HALF IN THE AFTERNOON
     Route: 065
     Dates: start: 20220822

REACTIONS (17)
  - Angina pectoris [Unknown]
  - Feeling abnormal [Unknown]
  - Personality change [Unknown]
  - Pain [Unknown]
  - Ocular hyperaemia [Unknown]
  - Dissociation [Unknown]
  - Thinking abnormal [Unknown]
  - Disturbance in social behaviour [Unknown]
  - Renal pain [Unknown]
  - Fatigue [Unknown]
  - Somnolence [Unknown]
  - Headache [Unknown]
  - Visual impairment [Unknown]
  - Vomiting [Unknown]
  - Nausea [Unknown]
  - Wrong technique in product usage process [Unknown]
  - Drug ineffective [Unknown]

NARRATIVE: CASE EVENT DATE: 20220101
